FAERS Safety Report 24694554 (Version 2)
Quarter: 2025Q1

REPORT INFORMATION
  Report Type: Report from Study
  Country: DE (occurrence: DE)
  Receive Date: 20241204
  Receipt Date: 20250114
  Transmission Date: 20250409
  Serious: No
  Sender: TAKEDA
  Company Number: DE-TAKEDA-2024TUS118023

PATIENT
  Age: 59 Year
  Sex: Male

DRUGS (8)
  1. TEDUGLUTIDE [Suspect]
     Active Substance: TEDUGLUTIDE
     Indication: Short-bowel syndrome
     Dosage: 3.89 MILLIGRAM, QD
     Dates: start: 20141119
  2. TEDUGLUTIDE [Suspect]
     Active Substance: TEDUGLUTIDE
  3. TEDUGLUTIDE [Suspect]
     Active Substance: TEDUGLUTIDE
  4. TEDUGLUTIDE [Suspect]
     Active Substance: TEDUGLUTIDE
  5. CHOLESTYRAMINE [Concomitant]
     Active Substance: CHOLESTYRAMINE
     Indication: Short-bowel syndrome
     Dosage: 4 GRAM, TID
     Dates: start: 2024
  6. PROPOFOL [Concomitant]
     Active Substance: PROPOFOL
     Indication: Imaging procedure
     Dosage: 550 MILLIGRAM, SINGLE
     Dates: start: 20210729, end: 20210729
  7. PROPOFOL [Concomitant]
     Active Substance: PROPOFOL
     Indication: Anaesthesia
     Dosage: 560 MILLIGRAM, SINGLE
     Dates: start: 20220804, end: 20220804
  8. PROPOFOL [Concomitant]
     Active Substance: PROPOFOL
     Dosage: 460 MILLIGRAM, SINGLE
     Dates: start: 20241121, end: 20241121

REACTIONS (1)
  - Diverticulum intestinal [Not Recovered/Not Resolved]

NARRATIVE: CASE EVENT DATE: 20241121
